FAERS Safety Report 5001023-4 (Version None)
Quarter: 2006Q2

REPORT INFORMATION
  Report Type: 
  Country: None (occurrence: None)
  Receive Date: 20060512
  Receipt Date: 20060508
  Transmission Date: 20061013
  Serious: Yes (Other)
  Sender: FDA-Public Use
  Company Number: CA-GLAXOSMITHKLINE-A0605144A

PATIENT
  Age: 36 Year
  Sex: Female

DRUGS (9)
  1. PAXIL [Suspect]
     Indication: DRUG USE FOR UNKNOWN INDICATION
     Dosage: 20MG PER DAY
     Route: 048
  2. WELLBUTRIN SR [Suspect]
     Indication: DRUG USE FOR UNKNOWN INDICATION
     Dosage: 150MG PER DAY
     Route: 048
  3. CYCLOBENZAPRINE HCL [Concomitant]
  4. ELTROXIN [Concomitant]
  5. ORTHO TRI-CYCLEN [Concomitant]
  6. TYLENOL W/ CODEINE NO. 3 [Concomitant]
  7. CELEXA [Concomitant]
  8. MOCLOBEMIDE [Concomitant]
  9. REMERON [Concomitant]

REACTIONS (4)
  - CONDITION AGGRAVATED [None]
  - DEPRESSION [None]
  - DRUG INEFFECTIVE [None]
  - SEXUAL DYSFUNCTION [None]
